FAERS Safety Report 25557186 (Version 1)
Quarter: 2025Q3

REPORT INFORMATION
  Report Type: Report from Study
  Country: CN (occurrence: CN)
  Receive Date: 20250715
  Receipt Date: 20250715
  Transmission Date: 20251021
  Serious: Yes (Hospitalization)
  Sender: DAIICHI
  Company Number: CN-DSJP-DSE-2022-112374

PATIENT
  Age: 79 Year
  Sex: Female
  Weight: 51 kg

DRUGS (6)
  1. EDOXABAN [Suspect]
     Active Substance: EDOXABAN
     Indication: Atrial fibrillation
     Dosage: 30 MG, QD
     Route: 048
     Dates: start: 20211230, end: 20220129
  2. EDOXABAN [Suspect]
     Active Substance: EDOXABAN
     Route: 048
     Dates: start: 20220130, end: 20220206
  3. EDOXABAN [Suspect]
     Active Substance: EDOXABAN
     Dosage: 30 MG, QD
     Route: 048
     Dates: start: 20220212, end: 20220312
  4. PROPAFENONE [Concomitant]
     Active Substance: PROPAFENONE
     Indication: Atrial fibrillation
     Dosage: 150 MG, TID
     Route: 048
     Dates: start: 20211230, end: 2022
  5. UBIDECARENONE [Concomitant]
     Active Substance: UBIDECARENONE
     Indication: Nutritional supplementation
     Dosage: 1 DOSAGE FORM, QD
     Route: 048
     Dates: start: 2015
  6. MM CHONDROITIN PLUS CALCIUM [Concomitant]
     Indication: Bone density increased
     Dosage: 1 TABLET, QD
     Route: 048
     Dates: start: 2010

REACTIONS (4)
  - Gastrointestinal haemorrhage [Recovered/Resolved]
  - Iron deficiency anaemia [Recovering/Resolving]
  - Gastrointestinal angiodysplasia [Recovered/Resolved]
  - Epistaxis [Recovered/Resolved]

NARRATIVE: CASE EVENT DATE: 20220103
